FAERS Safety Report 25124004 (Version 2)
Quarter: 2025Q4

REPORT INFORMATION
  Report Type: Report from Study
  Country: CA (occurrence: CA)
  Receive Date: 20250326
  Receipt Date: 20251029
  Transmission Date: 20260118
  Serious: Yes (Hospitalization, Other)
  Sender: SPECGX
  Company Number: CA-SPECGX-T202500645

PATIENT
  Age: 73 Year
  Sex: Male
  Weight: 66 kg

DRUGS (12)
  1. METHADONE [Suspect]
     Active Substance: METHADONE HYDROCHLORIDE
     Indication: Neuralgia
     Dosage: 3 MILLIGRAM, TID
     Route: 048
     Dates: start: 20250120
  2. METHADONE [Suspect]
     Active Substance: METHADONE HYDROCHLORIDE
     Dosage: 1 MILLIGRAM, BID
     Route: 048
     Dates: start: 20250317
  3. HYDROMORPHONE [Concomitant]
     Active Substance: HYDROMORPHONE
     Indication: Neuralgia
     Dosage: UNK
     Route: 048
     Dates: start: 20250120
  4. APIXABAN [Concomitant]
     Active Substance: APIXABAN
     Indication: Pulmonary embolism
     Dosage: UNK
     Route: 048
     Dates: start: 20240603, end: 20250303
  5. FOLIC ACID [Concomitant]
     Active Substance: FOLIC ACID
     Indication: Prophylaxis
     Dosage: UNK
     Route: 048
     Dates: start: 202406
  6. TAMSULOSIN [Concomitant]
     Active Substance: TAMSULOSIN
     Indication: Prophylaxis
     Dosage: UNK
     Route: 048
     Dates: start: 202406
  7. GRANISETRON HYDROCHLORIDE [Concomitant]
     Active Substance: GRANISETRON HYDROCHLORIDE
     Indication: Prophylaxis
     Dosage: UNK
     Route: 048
     Dates: start: 20250219
  8. DEXAMETHASONE [Concomitant]
     Active Substance: DEXAMETHASONE
     Indication: Prophylaxis
     Dosage: UNK
     Route: 048
     Dates: start: 20250219
  9. ACETAMINOPHEN [Concomitant]
     Active Substance: ACETAMINOPHEN
     Indication: Non-small cell lung cancer
     Dosage: UNK (325-650 MG AS NEEDED (PRN))
     Route: 048
     Dates: start: 20250317
  10. LOPERAMIDE [Concomitant]
     Active Substance: LOPERAMIDE
     Indication: Non-small cell lung cancer
     Dosage: AS NEEDED
     Route: 048
     Dates: start: 20250317
  11. DALTEPARIN [Concomitant]
     Active Substance: DALTEPARIN
     Indication: Pulmonary embolism
     Dosage: 15000 UNITS, QD
     Route: 058
     Dates: start: 20250303
  12. PROCHLORPERAZINE [Concomitant]
     Active Substance: PROCHLORPERAZINE
     Indication: Confusional state
     Dosage: 10 MILLIGRAM, PRN (EVERY 6 HOURLY)
     Route: 048
     Dates: start: 20250303

REACTIONS (26)
  - Delirium [Recovered/Resolved]
  - Pleural effusion [Unknown]
  - Non-small cell lung cancer [Unknown]
  - N-terminal prohormone brain natriuretic peptide increased [Unknown]
  - Blood iron decreased [Unknown]
  - Electrocardiogram abnormal [Unknown]
  - Blood potassium decreased [Unknown]
  - Dyspnoea [Unknown]
  - Haemoglobin decreased [Unknown]
  - Blood creatinine decreased [Unknown]
  - Alanine aminotransferase decreased [Unknown]
  - Blood lactate dehydrogenase increased [Unknown]
  - Serum ferritin decreased [Unknown]
  - Blood ketone body present [Unknown]
  - Blood sodium decreased [Unknown]
  - Iron binding capacity total decreased [Unknown]
  - Mean cell haemoglobin concentration decreased [Unknown]
  - Protein total decreased [Unknown]
  - Red blood cell sedimentation rate decreased [Unknown]
  - Protein urine present [Unknown]
  - Urine ketone body present [Unknown]
  - Left atrial enlargement [Unknown]
  - Sinus tachycardia [Unknown]
  - Constipation [Unknown]
  - Electrocardiogram QRS complex abnormal [Unknown]
  - Product use in unapproved indication [Unknown]

NARRATIVE: CASE EVENT DATE: 20250101
